FAERS Safety Report 24743131 (Version 1)
Quarter: 2024Q4

REPORT INFORMATION
  Report Type: Spontaneous
  Country: US (occurrence: US)
  Receive Date: 20241217
  Receipt Date: 20241217
  Transmission Date: 20250115
  Serious: No
  Sender: FERRING
  Company Number: US-FERRINGPH-2024FE06361

PATIENT
  Sex: Male
  Weight: 80 kg

DRUGS (2)
  1. REBYOTA [Suspect]
     Active Substance: DONOR HUMAN STOOL
     Indication: Clostridium difficile infection
     Dosage: UNK
     Route: 065
     Dates: start: 20241017, end: 20241017
  2. REBYOTA [Suspect]
     Active Substance: DONOR HUMAN STOOL
     Dosage: UNK
     Route: 065
     Dates: start: 2024, end: 2024

REACTIONS (2)
  - Treatment failure [Unknown]
  - Treatment failure [Unknown]

NARRATIVE: CASE EVENT DATE: 20240101
